FAERS Safety Report 10080311 (Version 1)
Quarter: 2014Q2

REPORT INFORMATION
  Report Type: Spontaneous
  Country: US (occurrence: US)
  Receive Date: 20140415
  Receipt Date: 20140415
  Transmission Date: 20141212
  Serious: No
  Sender: FDA-Public Use
  Company Number: US-009507513-1403USA011770

PATIENT
  Sex: Female

DRUGS (1)
  1. DULERA [Suspect]
     Dosage: 100/5 MICROGRAM, ONE PUFF TWICE A DAY
     Route: 055

REACTIONS (2)
  - Tongue discolouration [Not Recovered/Not Resolved]
  - Underdose [Unknown]
